FAERS Safety Report 9302209 (Version 2)
Quarter: 2013Q2

REPORT INFORMATION
  Report Type: Spontaneous
  Country: US (occurrence: US)
  Receive Date: 20130522
  Receipt Date: 20130612
  Transmission Date: 20140414
  Serious: No
  Sender: FDA-Public Use
  Company Number: US-B.I. PHARMACEUTICALS,INC./RIDGEFIELD-2013-BI-13812BP

PATIENT
  Age: 68 Year
  Sex: Male
  Weight: 86 kg

DRUGS (4)
  1. TRADJENTA [Suspect]
     Indication: TYPE 2 DIABETES MELLITUS
     Dosage: 5 MG
     Route: 048
     Dates: start: 201212, end: 201301
  2. TRADJENTA [Suspect]
     Dosage: 5 MG
     Route: 048
     Dates: start: 20130321
  3. VITAMIN B-12 [Concomitant]
     Indication: VITAMIN B12 DEFICIENCY
     Route: 048
     Dates: start: 2012
  4. TRIAMTERENE HCTZ [Concomitant]
     Indication: MENIERE^S DISEASE
     Dosage: STRENGTH: 37.5MG / 25MG, DAILY DOSE: 18.75MG / 12.50MG
     Route: 048
     Dates: start: 201305

REACTIONS (5)
  - Diabetes mellitus inadequate control [Recovered/Resolved]
  - Polyuria [Not Recovered/Not Resolved]
  - Testicular pain [Not Recovered/Not Resolved]
  - Dysuria [Not Recovered/Not Resolved]
  - Micturition urgency [Not Recovered/Not Resolved]
